FAERS Safety Report 5664596-4 (Version None)
Quarter: 2008Q1

REPORT INFORMATION
  Report Type: 
  Country: None (occurrence: None)
  Receive Date: 20080314
  Receipt Date: 20080306
  Transmission Date: 20080703
  Serious: Yes (Other)
  Sender: FDA-Public Use
  Company Number: JP-JNJFOC-20080302456

PATIENT
  Sex: Male

DRUGS (5)
  1. RISPERDAL [Suspect]
     Indication: DELIRIUM
     Route: 048
  2. DEPAS [Concomitant]
     Indication: MENTAL DISORDER
     Route: 048
  3. TAMSULOSIN HCL [Concomitant]
     Indication: INSOMNIA
     Route: 048
  4. CARBAMAZEPINE [Concomitant]
     Indication: DEPRESSION
     Route: 048
  5. NIFEDIPINE [Concomitant]
     Indication: HYPERTENSION
     Route: 048

REACTIONS (1)
  - PLATELET COUNT DECREASED [None]
